FAERS Safety Report 5213227-6 (Version None)
Quarter: 2007Q1

REPORT INFORMATION
  Report Type: 
  Country: None (occurrence: None)
  Receive Date: 20070118
  Receipt Date: 20070118
  Transmission Date: 20070707
  Serious: Yes (Disabling)
  Sender: FDA-Public Use
  Company Number: None

PATIENT
  Age: 28 Year
  Sex: Female
  Weight: 77.1115 kg

DRUGS (1)
  1. FLUOXETINE [Suspect]
     Indication: DEPRESSION
     Dosage: 10MG  DAILY  PO
     Route: 048
     Dates: start: 20060102, end: 20061231

REACTIONS (6)
  - BACK PAIN [None]
  - BRUXISM [None]
  - MUSCLE DISORDER [None]
  - NECK PAIN [None]
  - ORAL PAIN [None]
  - TENSION [None]
